FAERS Safety Report 21523871 (Version 1)
Quarter: 2022Q4

REPORT INFORMATION
  Report Type: Report from Study
  Country: AU (occurrence: AU)
  Receive Date: 20221029
  Receipt Date: 20221029
  Transmission Date: 20230112
  Serious: Yes (Other)
  Sender: FDA-Public Use
  Company Number: AU-ABBVIE-4178385

PATIENT
  Age: 72 Year
  Sex: Male
  Weight: 84 kg

DRUGS (9)
  1. UPADACITINIB [Suspect]
     Active Substance: UPADACITINIB
     Indication: Product used for unknown indication
     Route: 048
     Dates: start: 20210310
  2. ATORVASTATIN [Concomitant]
     Active Substance: ATORVASTATIN
     Indication: Hypercholesterolaemia
     Route: 048
     Dates: start: 202112
  3. SARS-CoV-2 Vaccine [Concomitant]
     Indication: COVID-19 immunisation
     Dates: start: 202107, end: 202107
  4. SARS-CoV-2 Vaccine [Concomitant]
     Indication: COVID-19 immunisation
     Dates: start: 20211019, end: 20211019
  5. LIPITOR [Concomitant]
     Active Substance: ATORVASTATIN CALCIUM
     Indication: Hypercholesterolaemia
     Route: 048
     Dates: start: 20210815, end: 202112
  6. METFORMIN HYDROCHLORIDE [Concomitant]
     Active Substance: METFORMIN HYDROCHLORIDE
     Indication: Type 2 diabetes mellitus
     Route: 048
     Dates: start: 2005
  7. LYRICA [Concomitant]
     Active Substance: PREGABALIN
     Indication: Sciatica
     Route: 048
     Dates: start: 202007, end: 20210602
  8. LYRICA [Concomitant]
     Active Substance: PREGABALIN
     Indication: Sciatica
     Route: 048
     Dates: start: 20210602
  9. METHOTREXATE [Concomitant]
     Active Substance: METHOTREXATE
     Indication: Product used for unknown indication
     Route: 048
     Dates: start: 2012

REACTIONS (1)
  - Cataract [Recovered/Resolved]

NARRATIVE: CASE EVENT DATE: 20220801
